FAERS Safety Report 24147080 (Version 1)
Quarter: 2024Q3

REPORT INFORMATION
  Report Type: Report from Study
  Country: TW (occurrence: None)
  Receive Date: 20240729
  Receipt Date: 20240729
  Transmission Date: 20241016
  Serious: Yes (Death)
  Sender: ASTRAZENECA
  Company Number: 2024A171207

PATIENT
  Sex: Male

DRUGS (1)
  1. IMFINZI [Suspect]
     Active Substance: DURVALUMAB
     Dosage: 720.0MG UNKNOWN
     Route: 042
     Dates: start: 20240520

REACTIONS (2)
  - Lung disorder [Fatal]
  - Pneumonia [Fatal]
